FAERS Safety Report 17179414 (Version 2)
Quarter: 2019Q4

REPORT INFORMATION
  Report Type: Spontaneous
  Country: US (occurrence: US)
  Receive Date: 20191219
  Receipt Date: 20191219
  Transmission Date: 20200122
  Serious: No
  Sender: FDA-Public Use
  Company Number: US-FERRINGPH-2019FE03374

PATIENT
  Age: 42 Year
  Sex: Female
  Weight: 47.62 kg

DRUGS (4)
  1. SYNTHROID [Concomitant]
     Active Substance: LEVOTHYROXINE SODIUM
     Indication: PRODUCT USED FOR UNKNOWN INDICATION
     Dosage: DAILY
     Route: 065
  2. GONAL-F [Concomitant]
     Active Substance: FOLLITROPIN
     Indication: PRODUCT USED FOR UNKNOWN INDICATION
     Route: 065
  3. MENOPUR [Suspect]
     Active Substance: FOLLITROPIN\LUTEINIZING HORMONE
     Dosage: 150 MG, UNK
     Route: 058
     Dates: start: 201905
  4. MENOPUR [Suspect]
     Active Substance: FOLLITROPIN\LUTEINIZING HORMONE
     Indication: OVULATION INDUCTION
     Dosage: 75 MG, UNK
     Route: 058
     Dates: start: 20190521

REACTIONS (1)
  - Solar lentigo [Unknown]

NARRATIVE: CASE EVENT DATE: 201905
